FAERS Safety Report 21484565 (Version 1)
Quarter: 2022Q4

REPORT INFORMATION
  Report Type: Spontaneous
  Country: US (occurrence: US)
  Receive Date: 20221020
  Receipt Date: 20221020
  Transmission Date: 20230113
  Serious: No
  Sender: FDA-Public Use
  Company Number: US-CELLTRION INC.-2022US010247

PATIENT

DRUGS (2)
  1. INFLECTRA [Suspect]
     Active Substance: INFLIXIMAB-DYYB
     Indication: Product used for unknown indication
     Dosage: DIRECTIONS: 558 MG IV DAY 1, DAY 15, DAY 43 THEN Q 8 WEEKS
     Route: 042
  2. INFLECTRA [Suspect]
     Active Substance: INFLIXIMAB-DYYB
     Dosage: 5MG/ML, CYCLIC (5MG/ML, CYCLIC (DAY 1, DAY 15, DAY 43 THEN Q 8 WEEKS)
     Route: 042

REACTIONS (1)
  - Unevaluable event [Unknown]
